FAERS Safety Report 4326401-8 (Version None)
Quarter: 2004Q1

REPORT INFORMATION
  Report Type: 
  Country: None (occurrence: None)
  Receive Date: 20040323
  Receipt Date: 20040311
  Transmission Date: 20041129
  Serious: Yes (Hospitalization)
  Sender: FDA-Public Use
  Company Number: 232465

PATIENT
  Age: 43 Year
  Sex: Male
  Weight: 104.3 kg

DRUGS (4)
  1. NOVOLOG PENFILL (INSULIN ASPART) SOLUTION FOR INJECTION, 100 IU/ML [Suspect]
     Indication: INSULIN-REQUIRING TYPE II DIABETES MELLITUS
     Dosage: 150 IU, QD, SUBCUTANEOUS
     Route: 058
     Dates: start: 20030101, end: 20030201
  2. NOVOPEN? 3 (INSULIN DELIVERY SERVICE) [Concomitant]
  3. BD ULTRAFINE DISPOSABLE NEEDLES [Concomitant]
  4. ACTOS [Concomitant]

REACTIONS (6)
  - MEDICAL DEVICE COMPLICATION [None]
  - MEDICATION ERROR [None]
  - NAUSEA [None]
  - PANCREATITIS [None]
  - PHARMACEUTICAL PRODUCT COMPLAINT [None]
  - VOMITING [None]
